FAERS Safety Report 5690256-X (Version None)
Quarter: 2008Q2

REPORT INFORMATION
  Report Type: 
  Country: None (occurrence: None)
  Receive Date: 20080401
  Receipt Date: 20080327
  Transmission Date: 20081010
  Serious: Yes (Hospitalization, Other)
  Sender: FDA-Public Use
  Company Number: CA-ASTRAZENECA-2008UW05181

PATIENT
  Age: 12912 Day
  Sex: Male
  Weight: 82.5 kg

DRUGS (1)
  1. CRESTOR [Suspect]
     Indication: BLOOD CHOLESTEROL INCREASED
     Route: 048
     Dates: start: 20080211, end: 20080307

REACTIONS (4)
  - ABDOMINAL PAIN [None]
  - MELAENA [None]
  - PEPTIC ULCER [None]
  - VARICELLA [None]
